FAERS Safety Report 21418261 (Version 1)
Quarter: 2022Q4

REPORT INFORMATION
  Report Type: Other
  Country: US (occurrence: None)
  Receive Date: 20221006
  Receipt Date: 20221006
  Transmission Date: 20230113
  Serious: Yes (Other)
  Sender: FDA-Public Use
  Company Number: US-ROCHE-3191367

PATIENT
  Sex: Male
  Weight: 140.61 kg

DRUGS (10)
  1. OCREVUS [Suspect]
     Active Substance: OCRELIZUMAB
     Indication: Multiple sclerosis
     Route: 065
  2. ACETAMINOPHEN [Concomitant]
     Active Substance: ACETAMINOPHEN
  3. CHOLECALCIFEROL [Concomitant]
     Active Substance: CHOLECALCIFEROL
  4. IBUPROFEN [Concomitant]
     Active Substance: IBUPROFEN
  5. ATORVASTATIN [Concomitant]
     Active Substance: ATORVASTATIN
  6. EUTHYROX [Concomitant]
     Active Substance: LEVOTHYROXINE SODIUM
  7. FUROSEMIDE [Concomitant]
     Active Substance: FUROSEMIDE
  8. ASPIRIN [Concomitant]
     Active Substance: ASPIRIN
  9. PLAVIX [Concomitant]
     Active Substance: CLOPIDOGREL BISULFATE
  10. IRON [Concomitant]
     Active Substance: IRON

REACTIONS (8)
  - Multiple sclerosis [Unknown]
  - Cerebellar infarction [Unknown]
  - Cerebrovascular accident [Unknown]
  - Cellulitis [Unknown]
  - Hypertension [Unknown]
  - Hyperlipidaemia [Unknown]
  - Fall [Unknown]
  - Treatment noncompliance [Unknown]
